FAERS Safety Report 6160588-X (Version None)
Quarter: 2009Q2

REPORT INFORMATION
  Report Type: 
  Country: None (occurrence: None)
  Receive Date: 20090416
  Receipt Date: 20090409
  Transmission Date: 20091009
  Serious: Yes (Death, Hospitalization)
  Sender: FDA-Public Use
  Company Number: 1-17983031

PATIENT
  Sex: Female
  Weight: 56.6996 kg

DRUGS (2)
  1. FENTANYL-75 [Suspect]
     Indication: BACK PAIN
     Dosage: 1 PATCH, EVERY 3 DAYS, TRANSDERMAL
     Route: 062
     Dates: end: 20080101
  2. UNSPECIFIED  IMMUNOSUPPRESSANT [Suspect]
     Indication: MYASTHENIA GRAVIS
     Dates: end: 20080101

REACTIONS (4)
  - COMA [None]
  - CONFUSIONAL STATE [None]
  - DISORIENTATION [None]
  - DISSEMINATED TUBERCULOSIS [None]
